FAERS Safety Report 19088359 (Version 1)
Quarter: 2021Q2

REPORT INFORMATION
  Report Type: Spontaneous
  Country: GB (occurrence: GB)
  Receive Date: 20210402
  Receipt Date: 20210402
  Transmission Date: 20210717
  Serious: Yes (Disabling, Other)
  Sender: FDA-Public Use
  Company Number: GB-PFIZER INC-2021334254

PATIENT
  Age: 61 Year
  Sex: Female
  Weight: 53 kg

DRUGS (2)
  1. ASTRAZENECA COVID?19 VACCINE [Concomitant]
     Active Substance: AZD-1222
     Indication: COVID-19 IMMUNISATION
  2. PAMIDRONATE DISODIUM. [Suspect]
     Active Substance: PAMIDRONATE DISODIUM
     Indication: MENISCUS INJURY
     Dosage: 90 MG
     Dates: start: 20190815, end: 20190815

REACTIONS (9)
  - Dizziness [Unknown]
  - Sensitive skin [Unknown]
  - Dry eye [Unknown]
  - Alopecia [Not Recovered/Not Resolved]
  - Tinnitus [Unknown]
  - Skin burning sensation [Unknown]
  - Skin irritation [Unknown]
  - Urticaria [Unknown]
  - Off label use [Unknown]

NARRATIVE: CASE EVENT DATE: 20191215
